FAERS Safety Report 6078920-4 (Version None)
Quarter: 2009Q1

REPORT INFORMATION
  Report Type: 
  Country: None (occurrence: None)
  Receive Date: 20090216
  Receipt Date: 20090115
  Transmission Date: 20090719
  Serious: No
  Sender: FDA-Public Use
  Company Number: US-BAYER-200911826NA

PATIENT
  Age: 25 Year
  Sex: Female

DRUGS (1)
  1. MIRENA [Suspect]
     Indication: CONTRACEPTION
     Route: 015
     Dates: start: 20081001, end: 20090108

REACTIONS (3)
  - ABDOMINAL PAIN LOWER [None]
  - IUCD COMPLICATION [None]
  - VAGINAL HAEMORRHAGE [None]
